FAERS Safety Report 15580358 (Version 17)
Quarter: 2025Q3

REPORT INFORMATION
  Report Type: Report from Study
  Country: CA (occurrence: CA)
  Receive Date: 20181102
  Receipt Date: 20250916
  Transmission Date: 20251021
  Serious: Yes (Other)
  Sender: TAKEDA
  Company Number: CA-TAKEDA-2018TUS031298

PATIENT
  Sex: Female

DRUGS (23)
  1. VEDOLIZUMAB [Suspect]
     Active Substance: VEDOLIZUMAB
     Indication: Crohn^s disease
  2. VEDOLIZUMAB [Suspect]
     Active Substance: VEDOLIZUMAB
  3. VEDOLIZUMAB [Suspect]
     Active Substance: VEDOLIZUMAB
  4. VEDOLIZUMAB [Suspect]
     Active Substance: VEDOLIZUMAB
     Dosage: 300 MILLIGRAM, Q4WEEKS
     Dates: start: 20191218
  5. VEDOLIZUMAB [Suspect]
     Active Substance: VEDOLIZUMAB
     Dosage: 300 MILLIGRAM, Q4WEEKS
  6. VEDOLIZUMAB [Suspect]
     Active Substance: VEDOLIZUMAB
     Dosage: 300 MILLIGRAM, Q4WEEKS
  7. VEDOLIZUMAB [Suspect]
     Active Substance: VEDOLIZUMAB
     Dosage: 300 MILLIGRAM, Q4WEEKS
  8. VEDOLIZUMAB [Suspect]
     Active Substance: VEDOLIZUMAB
     Dosage: 300 MILLIGRAM, Q4WEEKS
  9. VEDOLIZUMAB [Suspect]
     Active Substance: VEDOLIZUMAB
     Dosage: 300 MILLIGRAM, Q4WEEKS
  10. VEDOLIZUMAB [Suspect]
     Active Substance: VEDOLIZUMAB
     Dosage: 300 MILLIGRAM, Q4WEEKS
  11. VEDOLIZUMAB [Suspect]
     Active Substance: VEDOLIZUMAB
     Dosage: 300 MILLIGRAM, Q4WEEKS
     Dates: end: 20230530
  12. VEDOLIZUMAB [Suspect]
     Active Substance: VEDOLIZUMAB
  13. RINVOQ [Concomitant]
     Active Substance: UPADACITINIB
     Dosage: 45 MILLIGRAM, QD
  14. RINVOQ [Concomitant]
     Active Substance: UPADACITINIB
     Dosage: 30 MILLIGRAM, QD
     Dates: start: 20231108
  15. RINVOQ [Concomitant]
     Active Substance: UPADACITINIB
     Dosage: 45 MILLIGRAM, QD
     Dates: start: 20240204
  16. RINVOQ [Concomitant]
     Active Substance: UPADACITINIB
     Dosage: 45 MILLIGRAM, QD
     Dates: start: 20241107
  17. LOPERAMIDE [Concomitant]
     Active Substance: LOPERAMIDE
  18. Rinifol [Concomitant]
  19. VITAMIN B [Concomitant]
     Active Substance: VITAMIN B
  20. FLUCONAZOLE [Concomitant]
     Active Substance: FLUCONAZOLE
  21. CORTEF [Concomitant]
     Active Substance: HYDROCORTISONE
  22. VITAMIN B12 [Concomitant]
     Active Substance: CYANOCOBALAMIN
  23. TRAMADOL [Concomitant]
     Active Substance: TRAMADOL

REACTIONS (9)
  - Abscess intestinal [Recovered/Resolved]
  - Short-bowel syndrome [Unknown]
  - Abdominal discomfort [Unknown]
  - Poor venous access [Unknown]
  - Abdominal pain lower [Unknown]
  - Flank pain [Unknown]
  - Loss of therapeutic response [Unknown]
  - Off label use [Unknown]
  - Abdominal pain [Unknown]

NARRATIVE: CASE EVENT DATE: 20180101
